FAERS Safety Report 22165278 (Version 3)
Quarter: 2023Q2

REPORT INFORMATION
  Report Type: Spontaneous
  Country: ES (occurrence: ES)
  Receive Date: 20230403
  Receipt Date: 20230505
  Transmission Date: 20230722
  Serious: Yes (Other)
  Sender: FDA-Public Use
  Company Number: ES-MACLEODS PHARMA EU LTD-MAC2023040539

PATIENT

DRUGS (6)
  1. CELECOXIB [Suspect]
     Active Substance: CELECOXIB
     Indication: Arthralgia
     Dosage: 200 MILLIGRAM; TABLET (1 DOSAGE FORM TOTAL)
     Route: 048
  2. CELECOXIB [Suspect]
     Active Substance: CELECOXIB
     Dosage: 200 UNK, TABLET
     Route: 048
  3. ETORICOXIB [Suspect]
     Active Substance: ETORICOXIB
     Indication: Arthralgia
     Dosage: 160 MILLIGRAM (TABLET)
     Route: 048
  4. ETORICOXIB [Suspect]
     Active Substance: ETORICOXIB
     Dosage: 15 MILLIGRAM
     Route: 048
  5. ETORICOXIB [Suspect]
     Active Substance: ETORICOXIB
     Dosage: 15 MILLIGRAM
     Route: 048
  6. ETORICOXIB [Suspect]
     Active Substance: ETORICOXIB
     Dosage: 30 MILLIGRAM
     Route: 048

REACTIONS (2)
  - Cross sensitivity reaction [Recovered/Resolved]
  - Type IV hypersensitivity reaction [Recovered/Resolved]
